FAERS Safety Report 6793370-0 (Version None)
Quarter: 2010Q2

REPORT INFORMATION
  Report Type: 
  Country: None (occurrence: None)
  Receive Date: 20100624
  Receipt Date: 20100204
  Transmission Date: 20101027
  Serious: Yes (Other)
  Sender: FDA-Public Use
  Company Number: US-MYLANLABS-2010S1000182

PATIENT
  Age: 60 Year
  Sex: Female

DRUGS (12)
  1. CLOZAPINE [Suspect]
     Indication: BIPOLAR DISORDER
     Dates: start: 20091202, end: 20100106
  2. CLOZAPINE [Suspect]
     Indication: PSYCHOTIC DISORDER
     Dates: start: 20091202, end: 20100106
  3. CLOZAPINE [Suspect]
     Route: 048
     Dates: end: 20100107
  4. COGENTIN [Concomitant]
  5. PREVACID [Concomitant]
  6. LEVOTHYROXINE [Concomitant]
  7. SEROQUEL [Concomitant]
  8. ASPIRIN [Concomitant]
  9. ZYPREXA [Concomitant]
  10. KLOR-CON [Concomitant]
  11. DEPAKOTE [Concomitant]
  12. LISINOPRIL [Concomitant]

REACTIONS (1)
  - GRANULOCYTOPENIA [None]
